FAERS Safety Report 4960836-5 (Version None)
Quarter: 2006Q2

REPORT INFORMATION
  Report Type: 
  Country: None (occurrence: None)
  Receive Date: 20060403
  Receipt Date: 20060321
  Transmission Date: 20061013
  Serious: Yes (Hospitalization)
  Sender: FDA-Public Use
  Company Number: US-ROCHE-441257

PATIENT
  Age: 68 Year
  Sex: Female
  Weight: 54 kg

DRUGS (9)
  1. PEG-INTERFERON A-2A (RO 25-8310) [Suspect]
     Route: 058
     Dates: start: 20040930, end: 20050119
  2. RIBAVIRIN [Suspect]
     Route: 048
     Dates: start: 20040930, end: 20050120
  3. LEXAPRO [Concomitant]
     Indication: DEPRESSION
     Route: 048
     Dates: start: 20050218
  4. AVAPRO [Concomitant]
     Indication: HYPERTENSION
     Route: 048
     Dates: start: 20000615
  5. SYNTHROID [Concomitant]
     Indication: HYPOTHYROIDISM
     Route: 048
     Dates: start: 20050209
  6. LORAZEPAM [Concomitant]
     Indication: ANXIETY
     Route: 048
     Dates: start: 20040915
  7. VICODIN [Concomitant]
     Indication: SCIATICA
     Dosage: DOSE REPORTED AS 5/500MG
     Route: 048
     Dates: start: 20030615
  8. DYAZIDE [Concomitant]
     Indication: HYPERTENSION
     Dosage: DOSE REPORTED AS 37.5/25MG
     Route: 048
     Dates: start: 20000615
  9. ALEVE [Concomitant]
     Indication: SCIATICA
     Route: 048
     Dates: start: 20040913

REACTIONS (2)
  - BREAST CANCER [None]
  - RASH GENERALISED [None]
